FAERS Safety Report 18866982 (Version 1)
Quarter: 2021Q1

REPORT INFORMATION
  Report Type: Other
  Country: FR (occurrence: FR)
  Receive Date: 20210208
  Receipt Date: 20210208
  Transmission Date: 20210420
  Serious: Yes (Life-Threatening)
  Sender: FDA-Public Use
  Company Number: FR-CELLTRION INC.-2021FR001175

PATIENT

DRUGS (8)
  1. PERFALGAN [Concomitant]
     Active Substance: ACETAMINOPHEN
  2. NEOFORDEX [Concomitant]
     Active Substance: DEXAMETHASONE ACETATE
  3. CARBOPLATINE ACCORD [Suspect]
     Active Substance: CARBOPLATIN
     Indication: B-CELL LYMPHOMA
     Dosage: 560 MG, QD
     Route: 042
     Dates: start: 20200730, end: 20200730
  4. EMEND [Concomitant]
     Active Substance: APREPITANT
  5. TRUXIMA [Suspect]
     Active Substance: RITUXIMAB-ABBS
     Indication: B-CELL LYMPHOMA
     Dosage: 750 MG, QD
     Route: 042
     Dates: start: 20200730, end: 20200730
  6. POLARAMINE [Concomitant]
     Active Substance: DEXCHLORPHENIRAMINE MALEATE
  7. CYTARABINE SANDOZ [Suspect]
     Active Substance: CYTARABINE
     Indication: B-CELL LYMPHOMA
     Dosage: 8000 MG, QD
     Route: 042
     Dates: start: 20200731, end: 20200731
  8. ONDANSETRON ACCORD [Concomitant]
     Active Substance: ONDANSETRON

REACTIONS (2)
  - Shock [Recovered/Resolved]
  - Underdose [Unknown]

NARRATIVE: CASE EVENT DATE: 20200730
